FAERS Safety Report 20432506 (Version 1)
Quarter: 2022Q1

REPORT INFORMATION
  Report Type: Spontaneous
  Country: US (occurrence: US)
  Receive Date: 20220204
  Receipt Date: 20220204
  Transmission Date: 20220424
  Serious: No
  Sender: FDA-Public Use
  Company Number: US-PERRIGO-21US032123

PATIENT
  Sex: Female

DRUGS (1)
  1. TRETINOIN [Suspect]
     Active Substance: TRETINOIN
     Indication: Product used for unknown indication
     Dosage: THIN FILM, QD
     Route: 061
     Dates: start: 20211204, end: 20211206

REACTIONS (1)
  - Application site acne [Recovered/Resolved]

NARRATIVE: CASE EVENT DATE: 20211205
